FAERS Safety Report 11615857 (Version 1)
Quarter: 2015Q4

REPORT INFORMATION
  Report Type: Spontaneous
  Country: US (occurrence: None)
  Receive Date: 20151008
  Receipt Date: 20151008
  Transmission Date: 20160304
  Serious: Yes (Disabling)
  Sender: FDA-Public Use
  Company Number: None

PATIENT
  Age: 51 Year
  Sex: Male
  Weight: 97.98 kg

DRUGS (6)
  1. XARELTO [Concomitant]
     Active Substance: RIVAROXABAN
  2. METFORMIN [Concomitant]
     Active Substance: METFORMIN HYDROCHLORIDE
  3. COMPOUND CREAM - LIDOCAINE/PRILOCAINE/LAMOTRIGINE/MELOXICAM [Suspect]
     Active Substance: LAMOTRIGINE\LIDOCAINE\MELOXICAM\PRILOCAINE
     Indication: MUSCULOSKELETAL PAIN
     Dosage: RUBBED ONTO SHOULDER; Q5D, 2 PUMPS
     Dates: start: 20150808, end: 20150821
  4. DULOXETINE. [Concomitant]
     Active Substance: DULOXETINE
  5. ATORVASTATIN [Concomitant]
     Active Substance: ATORVASTATIN
  6. METOPROLOL [Concomitant]
     Active Substance: METOPROLOL

REACTIONS (6)
  - Hypoaesthesia oral [None]
  - Vomiting [None]
  - Cough [None]
  - Euphoric mood [None]
  - Nausea [None]
  - Dizziness [None]
